FAERS Safety Report 15007963 (Version 1)
Quarter: 2018Q2

REPORT INFORMATION
  Report Type: Report from Study
  Country: None (occurrence: TR)
  Receive Date: 20180613
  Receipt Date: 20180613
  Transmission Date: 20180711
  Serious: Yes (Hospitalization)
  Sender: FDA-Public Use
  Company Number: TR-ABBVIE-18K-161-2218045-00

PATIENT
  Age: 46 Year
  Sex: Female
  Weight: 75 kg

DRUGS (5)
  1. DUODOPA [Suspect]
     Active Substance: CARBIDOPA\LEVODOPA
     Dosage: MORNING DOSE: 2.0 ML; CONTINUOUS DOSE: 1.1 ML EXTRA DOSE: 0.5 ML
     Route: 050
     Dates: start: 201712, end: 20180607
  2. MOTILIUM [Concomitant]
     Active Substance: DOMPERIDONE
     Indication: NAUSEA
     Route: 048
  3. AZILECT [Concomitant]
     Active Substance: RASAGILINE MESYLATE
     Indication: PARKINSON^S DISEASE
     Route: 048
  4. DUODOPA [Suspect]
     Active Substance: CARBIDOPA\LEVODOPA
     Dosage: MORNING DOSE: 2.0 ML; CONTINUOUS DOSE: UNKNOWN EXTRA DOSE: 0.5 ML
     Route: 050
     Dates: start: 20180607
  5. DUODOPA [Suspect]
     Active Substance: CARBIDOPA\LEVODOPA
     Indication: PARKINSON^S DISEASE
     Dosage: MORNING DOSE: 3.1 ML; CONTINUOUS DOSE: 1.5 ML; EXTRA DOSE: 2.0 ML
     Route: 050
     Dates: start: 20171003, end: 201712

REACTIONS (8)
  - Dyskinesia [Not Recovered/Not Resolved]
  - Nausea [Recovering/Resolving]
  - Dyskinesia [Recovered/Resolved]
  - Weight decreased [Not Recovered/Not Resolved]
  - Stoma site discharge [Recovering/Resolving]
  - Fall [Recovered/Resolved]
  - Bradykinesia [Recovered/Resolved]
  - Stoma site erythema [Recovering/Resolving]

NARRATIVE: CASE EVENT DATE: 20171003
